FAERS Safety Report 9813794 (Version 1)
Quarter: 2014Q1

REPORT INFORMATION
  Report Type: Spontaneous
  Country: US (occurrence: None)
  Receive Date: 20140109
  Receipt Date: 20140109
  Transmission Date: 20141002
  Serious: Yes (Hospitalization)
  Sender: FDA-Public Use
  Company Number: None

PATIENT
  Age: 63 Year
  Sex: Male
  Weight: 67.8 kg

DRUGS (2)
  1. LITHIUM [Suspect]
     Indication: SCHIZOAFFECTIVE DISORDER
     Route: 048
     Dates: start: 20130917, end: 20131201
  2. BUPRENORPHINE [Suspect]
     Indication: PAIN
     Dates: start: 20131130, end: 20131130

REACTIONS (9)
  - Fall [None]
  - Cardiac failure [None]
  - Somnolence [None]
  - Sedation [None]
  - Hyperreflexia [None]
  - Tremor [None]
  - Clonus [None]
  - Electrocardiogram T wave inversion [None]
  - Toxicity to various agents [None]
